FAERS Safety Report 25731080 (Version 2)
Quarter: 2025Q3

REPORT INFORMATION
  Report Type: Report from Study
  Country: US (occurrence: US)
  Receive Date: 20250827
  Receipt Date: 20250926
  Transmission Date: 20251021
  Serious: Yes (Other)
  Sender: MALLINCKRODT
  Company Number: US-MALLINCKRODT-MNK202505109

PATIENT
  Sex: Female

DRUGS (1)
  1. CORTICOTROPIN [Suspect]
     Active Substance: CORTICOTROPIN
     Indication: Dry eye

REACTIONS (8)
  - Gastric ulcer [Unknown]
  - Pruritus [Unknown]
  - Eye pruritus [Unknown]
  - Insomnia [Recovering/Resolving]
  - Hypertension [Unknown]
  - Abdominal distension [Unknown]
  - Injection site discolouration [Recovered/Resolved]
  - Injection site bruising [Recovered/Resolved]
